FAERS Safety Report 17115635 (Version 1)
Quarter: 2019Q4

REPORT INFORMATION
  Report Type: Spontaneous
  Country: US (occurrence: US)
  Receive Date: 20191205
  Receipt Date: 20191205
  Transmission Date: 20200122
  Serious: Yes (Other)
  Sender: FDA-Public Use
  Company Number: US-PFIZER INC-2019524130

PATIENT
  Age: 75 Year
  Sex: Female
  Weight: 76.64 kg

DRUGS (1)
  1. AMIODARONE HCL [Suspect]
     Active Substance: AMIODARONE HYDROCHLORIDE
     Dosage: UNK

REACTIONS (4)
  - Mitral valve incompetence [Unknown]
  - Fatigue [Unknown]
  - Dyspnoea exertional [Unknown]
  - Dizziness [Unknown]
